FAERS Safety Report 17741799 (Version 2)
Quarter: 2020Q2

REPORT INFORMATION
  Report Type: Report from Study
  Country: JP (occurrence: JP)
  Receive Date: 20200504
  Receipt Date: 20200506
  Transmission Date: 20200714
  Serious: Yes (Death)
  Sender: FDA-Public Use
  Company Number: JP-PFIZER INC-2020175722

PATIENT
  Age: 64 Year
  Sex: Male

DRUGS (1)
  1. FOSFLUCONAZOLE [Suspect]
     Active Substance: FOSFLUCONAZOLE
     Indication: CANDIDA INFECTION
     Dosage: 400 MG

REACTIONS (2)
  - Systemic candida [Fatal]
  - Drug resistance [Fatal]
